FAERS Safety Report 5866974-7 (Version None)
Quarter: 2008Q3

REPORT INFORMATION
  Report Type: 
  Country: None (occurrence: None)
  Receive Date: 20080828
  Receipt Date: 20080828
  Transmission Date: 20090109
  Serious: Yes (Hospitalization)
  Sender: FDA-Public Use
  Company Number: None

PATIENT
  Sex: Male
  Weight: 93.63 kg

DRUGS (4)
  1. DOCETAXEL [Suspect]
     Dosage: 75 MG
     Dates: end: 20080415
  2. ATRASENTAN/PLACEBO [Concomitant]
  3. DEXAMETHASONE TAB [Concomitant]
  4. PREDNISONE [Concomitant]

REACTIONS (3)
  - DYSPNOEA [None]
  - OEDEMA [None]
  - OEDEMA PERIPHERAL [None]
